FAERS Safety Report 8605912 (Version 2)
Quarter: 2013Q1

REPORT INFORMATION
  Report Type: Spontaneous
  Country: US (occurrence: US)
  Receive Date: 20120608
  Receipt Date: 20130116
  Transmission Date: 20140127
  Serious: No
  Sender: FDA-Public Use
  Company Number: US-ASTRAZENECA-2010SE08583

PATIENT
  Age: 85 Year
  Sex: Female

DRUGS (1)
  1. NEXIUM [Suspect]
     Route: 048

REACTIONS (9)
  - Fatigue [Unknown]
  - Visual impairment [Unknown]
  - Regurgitation [Unknown]
  - Influenza [Unknown]
  - Dysphonia [Unknown]
  - Dizziness [Unknown]
  - Malaise [Unknown]
  - Dizziness [Unknown]
  - Constipation [Unknown]
